FAERS Safety Report 8093419-1 (Version None)
Quarter: 2012Q1

REPORT INFORMATION
  Report Type: 
  Country: None (occurrence: None)
  Receive Date: 20120128
  Receipt Date: 20110901
  Transmission Date: 20120608
  Serious: No
  Sender: FDA-Public Use
  Company Number: US-ABBOTT-11P-163-0851087-00

PATIENT
  Sex: Male
  Weight: 83.99 kg

DRUGS (8)
  1. MILK THISTLE [Concomitant]
     Indication: SUPPLEMENTATION THERAPY
  2. HUMIRA [Suspect]
     Indication: CROHN'S DISEASE
     Dates: start: 20110701
  3. VITAMIN D [Concomitant]
     Indication: VITAMIN SUPPLEMENTATION
  4. CITALOPRAM [Concomitant]
     Indication: DEPRESSION
  5. ACIDOPHILUS [Concomitant]
     Indication: SUPPLEMENTATION THERAPY
  6. VITAMIN E [Concomitant]
     Indication: VITAMIN SUPPLEMENTATION
  7. AZATHIOPRINE [Concomitant]
     Indication: CROHN'S DISEASE
  8. AMITRIPTYLINE HCL [Concomitant]
     Indication: CLUSTER HEADACHE

REACTIONS (6)
  - INJECTION SITE HAEMORRHAGE [None]
  - MUSCULOSKELETAL PAIN [None]
  - BLOOD DISORDER [None]
  - CONTUSION [None]
  - INJECTION SITE PAIN [None]
  - PAIN IN EXTREMITY [None]
